FAERS Safety Report 9418741 (Version 2)
Quarter: 2013Q3

REPORT INFORMATION
  Report Type: Spontaneous
  Country: US (occurrence: US)
  Receive Date: 20130725
  Receipt Date: 20130808
  Transmission Date: 20140515
  Serious: No
  Sender: FDA-Public Use
  Company Number: US-PFIZER INC-2013216051

PATIENT
  Sex: Male

DRUGS (1)
  1. LYRICA [Suspect]
     Dosage: 100 MG, 3X/DAY

REACTIONS (5)
  - Pain in extremity [Unknown]
  - Insomnia [Unknown]
  - Dyspnoea [Unknown]
  - Headache [Unknown]
  - Eye irritation [Unknown]
